FAERS Safety Report 17468707 (Version 1)
Quarter: 2020Q1

REPORT INFORMATION
  Report Type: Spontaneous
  Country: US (occurrence: US)
  Receive Date: 20200227
  Receipt Date: 20200227
  Transmission Date: 20200409
  Serious: Yes (Death)
  Sender: FDA-Public Use
  Company Number: US-LUNDBECK-DKLU3012911

PATIENT
  Sex: Male

DRUGS (32)
  1. NORTHERA [Suspect]
     Active Substance: DROXIDOPA
     Indication: ORTHOSTATIC HYPOTENSION
     Dosage: TOTAL OF 300 MG DAILY ON THE 1ST AND 2ND DAYS OF THERAPY
     Route: 048
  2. NORTHERA [Suspect]
     Active Substance: DROXIDOPA
     Dosage: TOTAL OF 1200 MG DAILY ON THE 7TH AND 8TH DAYS OF THERAPY
     Route: 048
  3. MONTELUKAST SODIUM. [Concomitant]
     Active Substance: MONTELUKAST SODIUM
     Indication: PRODUCT USED FOR UNKNOWN INDICATION
     Route: 065
  4. NORTHERA [Suspect]
     Active Substance: DROXIDOPA
     Indication: SYNCOPE
     Dosage: TOTAL OF 300 MG DAILY ON THE 1ST AND 2ND DAYS OF THERAPY
     Route: 048
  5. NORTHERA [Suspect]
     Active Substance: DROXIDOPA
     Dosage: TOTAL OF 600 MG DAILY ON THE 3RD AND 4TH DAYS OF THERAPY
     Route: 048
  6. NORTHERA [Suspect]
     Active Substance: DROXIDOPA
     Dosage: TOTAL OF 1200 MG DAILY ON THE 7TH AND 8TH DAYS OF THERAPY
     Route: 048
  7. NORTHERA [Suspect]
     Active Substance: DROXIDOPA
     Dosage: TOTAL OF 1800 MG DAILY ON THE 11TH DAY OF THERAPY AND THEREAFTER
     Route: 048
  8. PANTOPRAZOLE SODIUM. [Concomitant]
     Active Substance: PANTOPRAZOLE SODIUM
     Indication: PRODUCT USED FOR UNKNOWN INDICATION
     Route: 065
  9. NITROGLYCERIN. [Concomitant]
     Active Substance: NITROGLYCERIN
     Indication: PRODUCT USED FOR UNKNOWN INDICATION
     Route: 060
  10. MULTIVITAMINS WITH IRON [Concomitant]
     Active Substance: IRON\VITAMINS
     Indication: PRODUCT USED FOR UNKNOWN INDICATION
     Route: 065
  11. NORTHERA [Suspect]
     Active Substance: DROXIDOPA
     Dosage: TOTAL OF 1500 MG DAILY ON THE 9TH AND 10TH DAYS OF THERAPY
     Route: 048
  12. NORTHERA [Suspect]
     Active Substance: DROXIDOPA
     Dosage: TOTAL OF 1500 MG DAILY ON THE 9TH AND 10TH DAYS OF THERAPY
     Route: 048
  13. NORTHERA [Suspect]
     Active Substance: DROXIDOPA
     Dosage: TOTAL OF 1800 MG DAILY ON THE 11TH DAY OF THERAPY AND THEREAFTER
     Route: 048
  14. TAMSULOSIN HCL [Concomitant]
     Active Substance: TAMSULOSIN HYDROCHLORIDE
     Indication: PRODUCT USED FOR UNKNOWN INDICATION
     Route: 065
  15. CEFUROXIME. [Concomitant]
     Active Substance: CEFUROXIME
     Indication: PRODUCT USED FOR UNKNOWN INDICATION
     Route: 065
  16. NORTHERA [Suspect]
     Active Substance: DROXIDOPA
     Dosage: TOTAL OF 900 MG DAILY ON THE 5TH AND 6TH DAYS OF THERAPY
     Route: 048
  17. NORTHERA [Suspect]
     Active Substance: DROXIDOPA
     Dosage: TOTAL OF 900 MG DAILY ON THE 5TH AND 6TH DAYS OF THERAPY
     Route: 048
  18. NORTHERA [Suspect]
     Active Substance: DROXIDOPA
     Dosage: TOTAL OF 1200 MG DAILY ON THE 7TH AND 8TH DAYS OF THERAPY
     Route: 048
  19. NORTHERA [Suspect]
     Active Substance: DROXIDOPA
     Dosage: TOTAL OF 1500 MG DAILY ON THE 9TH AND 10TH DAYS OF THERAPY
     Route: 048
  20. VITAMIN B COMPLEX [Concomitant]
     Active Substance: CYANOCOBALAMIN\DEXPANTHENOL\NIACINAMIDE\PYRIDOXINE HYDROCHLORIDE\RIBOFLAVIN 5^-PHOSPHATE SODIUM\THIAMINE HYDROCHLORIDE\VITAMIN B COMPLEX
     Indication: PRODUCT USED FOR UNKNOWN INDICATION
     Route: 065
  21. NORTHERA [Suspect]
     Active Substance: DROXIDOPA
     Indication: PARKINSON^S DISEASE
     Dosage: TOTAL OF 300 MG DAILY ON THE 1ST AND 2ND DAYS OF THERAPY
     Route: 048
  22. NORTHERA [Suspect]
     Active Substance: DROXIDOPA
     Dosage: TOTAL OF 600 MG DAILY ON THE 3RD AND 4TH DAYS OF THERAPY
     Route: 048
  23. DOCUSATE CALCIUM. [Concomitant]
     Active Substance: DOCUSATE CALCIUM
     Indication: PRODUCT USED FOR UNKNOWN INDICATION
     Route: 065
  24. CARBIDOPA-LEVODOPA-ENTACAPONE [Concomitant]
     Active Substance: CARBIDOPA\ENTACAPONE\LEVODOPA
     Indication: PRODUCT USED FOR UNKNOWN INDICATION
     Route: 065
  25. SELEGILINE HCL [Concomitant]
     Active Substance: SELEGILINE HYDROCHLORIDE
     Indication: PRODUCT USED FOR UNKNOWN INDICATION
     Route: 065
  26. NORTHERA [Suspect]
     Active Substance: DROXIDOPA
     Dosage: TOTAL OF 900 MG DAILY ON THE 5TH AND 6TH DAYS OF THERAPY
     Route: 048
  27. BUDESONIDE. [Concomitant]
     Active Substance: BUDESONIDE
     Indication: PRODUCT USED FOR UNKNOWN INDICATION
     Route: 065
  28. NORTHERA [Suspect]
     Active Substance: DROXIDOPA
     Dosage: TOTAL OF 1800 MG DAILY ON THE 11TH DAY OF THERAPY AND THEREAFTER
     Route: 048
  29. FLUDROCORTISONE ACETATE. [Concomitant]
     Active Substance: FLUDROCORTISONE ACETATE
     Indication: PRODUCT USED FOR UNKNOWN INDICATION
     Route: 065
  30. ALBUTEROL SULFATE. [Concomitant]
     Active Substance: ALBUTEROL SULFATE
     Indication: PRODUCT USED FOR UNKNOWN INDICATION
     Route: 065
  31. NORTHERA [Suspect]
     Active Substance: DROXIDOPA
     Dosage: TOTAL OF 600 MG DAILY ON THE 3RD AND 4TH DAYS OF THERAPY
     Route: 048
  32. ATORVASTATIN CALCIUM. [Concomitant]
     Active Substance: ATORVASTATIN CALCIUM
     Indication: PRODUCT USED FOR UNKNOWN INDICATION
     Route: 065

REACTIONS (1)
  - Death [Fatal]
